FAERS Safety Report 10149855 (Version 1)
Quarter: 2014Q2

REPORT INFORMATION
  Report Type: Spontaneous
  Country: US (occurrence: None)
  Receive Date: 20140501
  Receipt Date: 20140501
  Transmission Date: 20141212
  Serious: Yes (Other)
  Sender: FDA-Public Use
  Company Number: None

PATIENT
  Sex: Female

DRUGS (3)
  1. FLUOXETINE [Suspect]
     Indication: MAJOR DEPRESSION
     Dosage: FAILED 08,09 + 4/13
  2. WELLBUTRIN [Suspect]
     Indication: MAJOR DEPRESSION
     Dates: start: 200902, end: 200910
  3. CYMBALTA [Suspect]
     Dates: start: 2008, end: 2009

REACTIONS (4)
  - Major depression [None]
  - Cognitive disorder [None]
  - Drug ineffective [None]
  - Product substitution issue [None]
